FAERS Safety Report 8610987-9 (Version None)
Quarter: 2012Q3

REPORT INFORMATION
  Report Type: 
  Country: None (occurrence: None)
  Receive Date: 20120822
  Receipt Date: 20120813
  Transmission Date: 20120928
  Serious: Yes (Other)
  Sender: FDA-Public Use
  Company Number: US-JNJFOC-20120807335

PATIENT
  Sex: Female

DRUGS (4)
  1. METHOTREXATE [Suspect]
     Indication: RHEUMATOID ARTHRITIS
     Route: 065
     Dates: start: 20110901, end: 20120601
  2. REMICADE [Suspect]
     Indication: RHEUMATOID ARTHRITIS
     Dosage: RECEIVED 7 INFUSIONS SINCE RESTART
     Route: 042
     Dates: start: 20110901
  3. REMICADE [Suspect]
     Dosage: DOSE ALSO REPORTED AS 3 MG/KG
     Route: 042
     Dates: start: 20090101, end: 20110301
  4. METHOTREXATE [Suspect]
     Route: 065
     Dates: start: 20090101, end: 20110301

REACTIONS (2)
  - PETECHIAE [None]
  - PLATELET COUNT DECREASED [None]
